FAERS Safety Report 6153521-8 (Version None)
Quarter: 2009Q2

REPORT INFORMATION
  Report Type: 
  Country: None (occurrence: None)
  Receive Date: 20090413
  Receipt Date: 20090403
  Transmission Date: 20091009
  Serious: Yes (Hospitalization)
  Sender: FDA-Public Use
  Company Number: PHHY2009GB10591

PATIENT
  Sex: Male

DRUGS (2)
  1. CLOZARIL [Suspect]
     Indication: SCHIZOPHRENIA
     Dosage: 250 MG/DAY
     Route: 048
     Dates: start: 19991208
  2. CLOZARIL [Suspect]
     Dosage: 40 TABLETS
     Dates: start: 20090302, end: 20090317

REACTIONS (4)
  - CONVULSION [None]
  - ENCEPHALITIS [None]
  - MALAISE [None]
  - OVERDOSE [None]
